FAERS Safety Report 5020542-8 (Version None)
Quarter: 2006Q2

REPORT INFORMATION
  Report Type: 
  Country: None (occurrence: None)
  Receive Date: 20060607
  Receipt Date: 20060607
  Transmission Date: 20061013
  Serious: Yes (Hospitalization)
  Sender: FDA-Public Use
  Company Number: None

PATIENT
  Age: 76 Year
  Sex: Male
  Weight: 79.1 kg

DRUGS (10)
  1. DOCETAXEL [Suspect]
     Indication: OESOPHAGEAL CARCINOMA
     Dosage: 10 MG/M2 IV
     Route: 042
     Dates: start: 20051114, end: 20060131
  2. CISPLATIN [Suspect]
     Dosage: 25 MG/M2 IV
     Route: 042
     Dates: start: 20051114, end: 20060131
  3. LISINOPRIL [Concomitant]
  4. ZOCOR [Concomitant]
  5. ASPIRIN [Concomitant]
  6. ZANTAC [Concomitant]
  7. DECADRON [Concomitant]
  8. AMBIEN [Concomitant]
  9. ARANESP [Concomitant]
  10. CARAFATE [Concomitant]

REACTIONS (7)
  - ABDOMINAL PAIN UPPER [None]
  - COMPUTERISED TOMOGRAM ABNORMAL [None]
  - CONFUSIONAL STATE [None]
  - FEEDING TUBE COMPLICATION [None]
  - NAUSEA [None]
  - SEPSIS [None]
  - VOMITING [None]
